FAERS Safety Report 5262810-0 (Version None)
Quarter: 2007Q1

REPORT INFORMATION
  Report Type: 
  Country: None (occurrence: None)
  Receive Date: 20070312
  Receipt Date: 20070302
  Transmission Date: 20070707
  Serious: Yes (Hospitalization)
  Sender: FDA-Public Use
  Company Number: ES-GLAXOSMITHKLINE-B0461322A

PATIENT
  Age: 76 Year
  Sex: Female

DRUGS (2)
  1. AUGMENTIN '125' [Suspect]
     Dosage: 500MG THREE TIMES PER DAY
     Route: 048
     Dates: start: 20060302, end: 20060310
  2. TAVANIC [Suspect]
     Dosage: 500MG PER DAY
     Route: 048
     Dates: start: 20060302, end: 20060310

REACTIONS (1)
  - CLOSTRIDIUM DIFFICILE COLITIS [None]
